FAERS Safety Report 6517116-6 (Version None)
Quarter: 2009Q4

REPORT INFORMATION
  Report Type: 
  Country: None (occurrence: None)
  Receive Date: 20091223
  Receipt Date: 20091215
  Transmission Date: 20100525
  Serious: Yes (Hospitalization, Other)
  Sender: FDA-Public Use
  Company Number: DE-JNJFOC-20091206144

PATIENT
  Age: 23 Year
  Sex: Female
  Weight: 63 kg

DRUGS (13)
  1. IBUPROFEN TABLETS [Suspect]
     Indication: NEURALGIA
     Route: 048
  2. TILIDINE [Suspect]
     Indication: NEURALGIA
     Route: 048
  3. TILIDINE [Suspect]
     Route: 048
  4. GABAPENTIN [Suspect]
     Indication: NEURALGIA
     Route: 048
  5. LYRICA [Suspect]
     Indication: NEURALGIA
     Route: 048
  6. VOLTAREN [Suspect]
     Indication: DRUG USE FOR UNKNOWN INDICATION
  7. DICLOFENAC SODIUM [Suspect]
     Indication: NEURALGIA
     Route: 048
  8. VITAMIN B COMPLEX CAP [Suspect]
     Indication: DRUG USE FOR UNKNOWN INDICATION
  9. OMEPRAZOLE [Suspect]
     Indication: DRUG USE FOR UNKNOWN INDICATION
  10. PARACETAMOL [Concomitant]
  11. PANTOPRAZOLE [Concomitant]
  12. URBASON [Concomitant]
  13. ORAL CONTRACEPTIVES [Concomitant]
     Route: 048

REACTIONS (16)
  - ABDOMINAL PAIN [None]
  - APATHY [None]
  - APHASIA [None]
  - BLINDNESS [None]
  - CONFUSIONAL STATE [None]
  - CONVULSION [None]
  - DISORIENTATION [None]
  - DRUG TOXICITY [None]
  - HAEMATEMESIS [None]
  - HYPOAESTHESIA [None]
  - LOSS OF CONSCIOUSNESS [None]
  - MUSCLE RIGIDITY [None]
  - PARALYSIS [None]
  - SPEECH DISORDER [None]
  - TRANCE [None]
  - WITHDRAWAL SYNDROME [None]
